FAERS Safety Report 11499750 (Version 2)
Quarter: 2015Q4

REPORT INFORMATION
  Report Type: Spontaneous
  Country: US (occurrence: US)
  Receive Date: 20150914
  Receipt Date: 20151019
  Transmission Date: 20160304
  Serious: Yes (Other)
  Sender: FDA-Public Use
  Company Number: US-UCBSA-2015021768

PATIENT
  Sex: Female

DRUGS (4)
  1. TOPIRAMATE. [Concomitant]
     Active Substance: TOPIRAMATE
     Indication: PRODUCT USED FOR UNKNOWN INDICATION
  2. KEPPRA [Suspect]
     Active Substance: LEVETIRACETAM
     Indication: PRODUCT USED FOR UNKNOWN INDICATION
     Dosage: 4000 MG
  3. DILANTIN [Concomitant]
     Active Substance: PHENYTOIN
     Indication: PRODUCT USED FOR UNKNOWN INDICATION
  4. FLEXERIL [Suspect]
     Active Substance: CYCLOBENZAPRINE HYDROCHLORIDE
     Indication: MUSCLE RELAXANT THERAPY
     Dosage: UNK

REACTIONS (10)
  - Overdose [Unknown]
  - Anger [Unknown]
  - Dyskinesia [Unknown]
  - Drug ineffective [Unknown]
  - Fatigue [Unknown]
  - Seizure [Unknown]
  - Status epilepticus [Unknown]
  - Generalised tonic-clonic seizure [Unknown]
  - Feeling abnormal [Unknown]
  - Off label use [Unknown]
